FAERS Safety Report 7995536-0 (Version None)
Quarter: 2011Q4

REPORT INFORMATION
  Report Type: 
  Country: None (occurrence: None)
  Receive Date: 20111217
  Receipt Date: 20111217
  Transmission Date: 20120403
  Serious: No
  Sender: FDA-Public Use
  Company Number: None

PATIENT
  Sex: Male
  Weight: 83.2 kg

DRUGS (1)
  1. FLECAINIDE ACETATE [Suspect]
     Indication: ATRIAL FIBRILLATION
     Dosage: 150 MG 2/DAY ORAL 5PM-8AM
     Route: 048
     Dates: start: 20111027, end: 20111102

REACTIONS (3)
  - ARRHYTHMIA [None]
  - DIZZINESS [None]
  - DIARRHOEA [None]
